FAERS Safety Report 4661215-0 (Version None)
Quarter: 2005Q2

REPORT INFORMATION
  Report Type: 
  Country: None (occurrence: None)
  Receive Date: 20050422
  Receipt Date: 20040915
  Transmission Date: 20051028
  Serious: Yes (Hospitalization)
  Sender: FDA-Public Use
  Company Number: 1781-073-3

PATIENT
  Age: 85 Year
  Sex: Male

DRUGS (1)
  1. DEXFERRUM [Suspect]
     Indication: NEPHROGENIC ANAEMIA
     Dosage: 200 MG IV
     Route: 042
     Dates: start: 20040908

REACTIONS (2)
  - CHILLS [None]
  - DYSPNOEA [None]
